FAERS Safety Report 9899965 (Version 1)
Quarter: 2014Q1

REPORT INFORMATION
  Report Type: Spontaneous
  Country: US (occurrence: US)
  Receive Date: 20140214
  Receipt Date: 20140214
  Transmission Date: 20141002
  Serious: No
  Sender: FDA-Public Use
  Company Number: US-VIVUS-2013V1000852

PATIENT
  Age: 64 Year
  Sex: Male

DRUGS (1)
  1. QSYMIA 7.5MG/46MG [Suspect]
     Indication: PRODUCT USED FOR UNKNOWN INDICATION
     Route: 048

REACTIONS (4)
  - Frequent bowel movements [Unknown]
  - Asthenia [Unknown]
  - Dyspnoea [Unknown]
  - Drug dose omission [Unknown]
